FAERS Safety Report 4364261-X (Version None)
Quarter: 2004Q2

REPORT INFORMATION
  Report Type: 
  Country: None (occurrence: None)
  Receive Date: 20040525
  Receipt Date: 20040223
  Transmission Date: 20050107
  Serious: Yes (Hospitalization)
  Sender: FDA-Public Use
  Company Number: US-MERCK-0402USA01724

PATIENT
  Age: 77 Year
  Sex: Female

DRUGS (13)
  1. VICODIN [Concomitant]
     Route: 048
     Dates: start: 19991013
  2. SOMA [Concomitant]
     Indication: MUSCLE SPASMS
     Route: 048
     Dates: start: 19991013
  3. SOMA [Concomitant]
     Route: 048
     Dates: start: 19991013
  4. CYANOCOBALAMIN [Concomitant]
     Indication: PERNICIOUS ANAEMIA
     Route: 030
  5. ESTRADIOL [Concomitant]
     Route: 030
  6. PREMARIN [Concomitant]
     Indication: HORMONE REPLACEMENT THERAPY
     Route: 065
     Dates: start: 19550101
  7. ALLEGRA [Concomitant]
     Route: 065
     Dates: start: 19991013
  8. LEVOXYL [Concomitant]
     Indication: HYPOTHYROIDISM
     Route: 065
  9. CLARITIN [Concomitant]
     Route: 065
     Dates: start: 19991013
  10. VIOXX [Suspect]
     Indication: ARTHRITIS
     Route: 048
     Dates: start: 19991105
  11. VIOXX [Suspect]
     Route: 048
     Dates: start: 19991105
  12. VIOXX [Suspect]
     Indication: PAIN
     Route: 048
     Dates: start: 19991105
  13. VIOXX [Suspect]
     Route: 048
     Dates: start: 19991105

REACTIONS (21)
  - ACUTE MYOCARDIAL INFARCTION [None]
  - ADJUSTMENT DISORDER [None]
  - ANXIETY [None]
  - ARTHRALGIA [None]
  - ARTHRITIS [None]
  - ASTHENIA [None]
  - BURSITIS [None]
  - CORONARY ARTERY DISEASE [None]
  - CORONARY ARTERY STENOSIS [None]
  - DECREASED APPETITE [None]
  - DRUG EFFECT DECREASED [None]
  - FALL [None]
  - FATIGUE [None]
  - HEADACHE [None]
  - HIP FRACTURE [None]
  - HYPERTENSION [None]
  - INSOMNIA [None]
  - IRRITABILITY [None]
  - MYOCARDIAL INFARCTION [None]
  - NERVOUSNESS [None]
  - POST PROCEDURAL HAEMORRHAGE [None]
